FAERS Safety Report 22142164 (Version 1)
Quarter: 2023Q1

REPORT INFORMATION
  Report Type: Spontaneous
  Country: US (occurrence: US)
  Receive Date: 20230327
  Receipt Date: 20230327
  Transmission Date: 20230418
  Serious: No
  Sender: FDA-Public Use
  Company Number: US-MIMS-CORIMC-1120

PATIENT

DRUGS (1)
  1. AZSTARYS [Suspect]
     Active Substance: DEXMETHYLPHENIDATE HYDROCHLORIDE\SERDEXMETHYLPHENIDATE CHLORIDE
     Indication: Attention deficit hyperactivity disorder
     Dosage: 39.2 MG/7.8 MG QAM
     Route: 048
     Dates: start: 20220623

REACTIONS (3)
  - Speech disorder [Unknown]
  - Tongue movement disturbance [Unknown]
  - Insomnia [Unknown]

NARRATIVE: CASE EVENT DATE: 20220623
